FAERS Safety Report 23334246 (Version 1)
Quarter: 2023Q4

REPORT INFORMATION
  Report Type: Spontaneous
  Country: BR (occurrence: BR)
  Receive Date: 20231223
  Receipt Date: 20231223
  Transmission Date: 20240110
  Serious: Yes (Other)
  Sender: FDA-Public Use
  Company Number: BR-BAXTER-2023BAX036743

PATIENT
  Age: 34 Year
  Sex: Female

DRUGS (2)
  1. IRON [Suspect]
     Active Substance: IRON
     Indication: Anaemia
     Dosage: 200 MG VIA ENDOVENOUS RUN SLOWLY OVER 2 HRS DILUTED IN 500 ML SALINE SOLUTION, 1 APPLICATION PER WEE
     Route: 042
     Dates: start: 20231117, end: 20231121
  2. SODIUM CHLORIDE [Suspect]
     Active Substance: SODIUM CHLORIDE
     Indication: Medication dilution
     Dosage: 500 ML VIA ENDOVENOUS RUN SLOWLY OVER 2 HRS, 1 APPLICATION PER WEEK, FOR 4 WEEKS, USED TO DILUTE 200
     Route: 042
     Dates: start: 20231117, end: 20231121

REACTIONS (6)
  - Chest pain [Recovered/Resolved]
  - Oedema peripheral [Recovered/Resolved]
  - Erythema [Recovered/Resolved]
  - Paraesthesia [Recovered/Resolved]
  - Oedema peripheral [Recovered/Resolved]
  - Urticaria [Recovered/Resolved]

NARRATIVE: CASE EVENT DATE: 20231117
